FAERS Safety Report 25330518 (Version 1)
Quarter: 2025Q2

REPORT INFORMATION
  Report Type: Spontaneous
  Country: US (occurrence: None)
  Receive Date: 20250518
  Receipt Date: 20250518
  Transmission Date: 20250717
  Serious: Yes (Disabling, Other)
  Sender: FDA-CTU
  Company Number: None

PATIENT
  Age: 40 Year
  Sex: Female
  Weight: 63 kg

DRUGS (5)
  1. ESCITALOPRAM [Suspect]
     Active Substance: ESCITALOPRAM OXALATE
     Indication: Depression
     Dosage: OTHER QUANTITY : 1 TABLET(S);?FREQUENCY : AT BEDTIME;?
     Route: 048
  2. ALLEGRA PEPCID [Concomitant]
  3. VITAMIN D3 [Concomitant]
     Active Substance: CHOLECALCIFEROL
  4. QUERCITIN [Concomitant]
  5. LIOISINAK VITAMIN C [Concomitant]

REACTIONS (15)
  - Withdrawal syndrome [None]
  - Tremor [None]
  - Burning sensation [None]
  - Hypoaesthesia [None]
  - Menstruation irregular [None]
  - Breast pain [None]
  - Flushing [None]
  - Rash [None]
  - Urticaria [None]
  - Gastrointestinal disorder [None]
  - Fatigue [None]
  - Temperature intolerance [None]
  - Drug eruption [None]
  - Drug hypersensitivity [None]
  - Blood iron decreased [None]

NARRATIVE: CASE EVENT DATE: 20240401
